FAERS Safety Report 7117950-8 (Version None)
Quarter: 2010Q4

REPORT INFORMATION
  Report Type: 
  Country: None (occurrence: None)
  Receive Date: 20101123
  Receipt Date: 20101116
  Transmission Date: 20110411
  Serious: Yes (Life-Threatening, Other)
  Sender: FDA-Public Use
  Company Number: PHHY2010TW78272

PATIENT
  Age: 84 Year
  Sex: Female

DRUGS (1)
  1. ACLASTA [Suspect]
     Indication: OSTEOPOROSIS POSTMENOPAUSAL
     Dosage: 5 MG/100 C.C, ONCE PER YEAR
     Dates: start: 20091218

REACTIONS (2)
  - FEELING ABNORMAL [None]
  - PAIN [None]
